FAERS Safety Report 20130088 (Version 1)
Quarter: 2021Q4

REPORT INFORMATION
  Report Type: Spontaneous
  Country: US (occurrence: US)
  Receive Date: 20211130
  Receipt Date: 20211130
  Transmission Date: 20220303
  Serious: Yes (Death, Hospitalization, Other)
  Sender: FDA-Public Use
  Company Number: US-PFIZER INC-2008153667

PATIENT
  Age: 40 Year
  Sex: Male

DRUGS (6)
  1. IBUPROFEN [Suspect]
     Active Substance: IBUPROFEN
     Indication: Suicide attempt
     Dosage: UNK
     Route: 048
  2. DIPHENHYDRAMINE [Suspect]
     Active Substance: DIPHENHYDRAMINE
     Indication: Suicide attempt
     Dosage: UNK
     Route: 048
  3. DEXTROMETHORPHAN [Suspect]
     Active Substance: DEXTROMETHORPHAN
     Indication: Suicide attempt
     Dosage: UNK
     Route: 048
  4. DOXYLAMINE [Suspect]
     Active Substance: DOXYLAMINE
     Indication: Suicide attempt
     Dosage: UNK
     Route: 048
  5. METHYL ALCOHOL [Suspect]
     Active Substance: METHYL ALCOHOL
     Indication: Suicide attempt
     Dosage: UNK
     Route: 048
  6. SODIUM HYDROXIDE [Suspect]
     Active Substance: SODIUM HYDROXIDE
     Indication: Suicide attempt
     Dosage: UNK
     Route: 048

REACTIONS (12)
  - Toxicity to various agents [Fatal]
  - Multiple organ dysfunction syndrome [Fatal]
  - Acute respiratory distress syndrome [Fatal]
  - Disseminated intravascular coagulation [Fatal]
  - Shock [Fatal]
  - Burn of internal organs [Fatal]
  - Completed suicide [Fatal]
  - Burn oesophageal [Fatal]
  - Gastritis [Fatal]
  - Tracheal oedema [Fatal]
  - Acute respiratory distress syndrome [Fatal]
  - Oral mucosal discolouration [Fatal]
